FAERS Safety Report 25879185 (Version 1)
Quarter: 2025Q4

REPORT INFORMATION
  Report Type: Spontaneous
  Country: US (occurrence: US)
  Receive Date: 20251003
  Receipt Date: 20251003
  Transmission Date: 20260118
  Serious: Yes (Other)
  Sender: VELOXIS PHARMACEUTICALS
  Company Number: US-MLMSERVICE-20160405-0232208-1

PATIENT
  Age: 15 Year
  Sex: Male

DRUGS (8)
  1. TACROLIMUS [Suspect]
     Active Substance: TACROLIMUS
     Indication: Immunosuppression
     Dosage: STEROID-FREE MAINTENANCE IMMUNOSUPPRESSION
  2. AZATHIOPRINE [Suspect]
     Active Substance: AZATHIOPRINE
     Indication: Immunosuppression
     Dosage: STEROID-BASED IMMUNOSUPPRESSION
  3. PREDNISOLONE [Suspect]
     Active Substance: PREDNISOLONE
     Indication: Immunosuppression
     Dosage: UNK
  4. MYCOPHENOLIC ACID [Suspect]
     Active Substance: MYCOPHENOLIC ACID
     Indication: Immunosuppression
     Dosage: STEROID-FREE MAINTENANCE IMMUNOSUPPRESSION
  5. THYMOCYTE IMMUNE GLOBULIN NOS [Suspect]
     Active Substance: THYMOCYTE IMMUNE GLOBULIN NOS
     Indication: Immunosuppression
     Dosage: 1.5 MG/KG/DOSE FOR A TOTAL OF THREE DOSES
  6. METHYLPREDNISOLONE [Concomitant]
     Active Substance: METHYLPREDNISOLONE
     Indication: Immunosuppression
     Dosage: UNK
  7. PROCYSBI [Concomitant]
     Active Substance: CYSTEAMINE BITARTRATE
     Indication: Product used for unknown indication
     Dosage: DELAYED- RELEASE
  8. PROCYSBI [Concomitant]
     Active Substance: CYSTEAMINE BITARTRATE
     Dosage: DELAYED- RELEASE

REACTIONS (3)
  - Transplant rejection [Recovered/Resolved]
  - Neutropenia [Recovered/Resolved]
  - Product use issue [Unknown]
